FAERS Safety Report 6645041-9 (Version None)
Quarter: 2010Q1

REPORT INFORMATION
  Report Type: 
  Country: None (occurrence: None)
  Receive Date: 20100322
  Receipt Date: 20100308
  Transmission Date: 20100710
  Serious: Yes (Other)
  Sender: FDA-Public Use
  Company Number: JP-MYLANLABS-2010S1003818

PATIENT
  Age: 20 Year
  Sex: Female

DRUGS (4)
  1. PARACETAMOL [Suspect]
     Indication: OVERDOSE
     Route: 065
  2. BROMISOVAL [Suspect]
     Indication: OVERDOSE
     Route: 065
  3. ETHENZAMIDE [Suspect]
     Indication: OVERDOSE
     Route: 065
  4. IBUPROFEN [Suspect]
     Indication: OVERDOSE
     Route: 065

REACTIONS (4)
  - HYPOKALAEMIA [None]
  - LIVER INJURY [None]
  - LOSS OF CONSCIOUSNESS [None]
  - OVERDOSE [None]
